FAERS Safety Report 5335171-6 (Version None)
Quarter: 2007Q2

REPORT INFORMATION
  Report Type: 
  Country: None (occurrence: None)
  Receive Date: 20070525
  Receipt Date: 20070515
  Transmission Date: 20071010
  Serious: Yes (Death)
  Sender: FDA-Public Use
  Company Number: JP-PFIZER INC-2007034919

PATIENT
  Sex: Male

DRUGS (2)
  1. ZYRTEC [Suspect]
     Indication: SEASONAL ALLERGY
     Dosage: DAILY DOSE:10MG
     Route: 048
     Dates: start: 20060201, end: 20060215
  2. CLEMASTINE FUMARATE [Concomitant]
     Route: 048
     Dates: start: 20060201, end: 20060216

REACTIONS (1)
  - ABNORMAL BEHAVIOUR [None]
